FAERS Safety Report 10629152 (Version 1)
Quarter: 2014Q4

REPORT INFORMATION
  Report Type: Spontaneous
  Country: US (occurrence: US)
  Receive Date: 20141205
  Receipt Date: 20141205
  Transmission Date: 20150529
  Serious: No
  Sender: FDA-Public Use
  Company Number: US-BRISTOL-MYERS SQUIBB COMPANY-20700001

PATIENT
  Age: 61 Year
  Sex: Female
  Weight: 87.53 kg

DRUGS (3)
  1. METFORMIN HCL [Suspect]
     Active Substance: METFORMIN HYDROCHLORIDE
  2. BYDUREON [Suspect]
     Active Substance: EXENATIDE
     Dates: start: 20140429
  3. BYETTA [Suspect]
     Active Substance: EXENATIDE
     Dates: end: 20140429

REACTIONS (1)
  - Blood glucose increased [Not Recovered/Not Resolved]
